FAERS Safety Report 24870891 (Version 1)
Quarter: 2025Q1

REPORT INFORMATION
  Report Type: Spontaneous
  Country: AT (occurrence: AT)
  Receive Date: 20250121
  Receipt Date: 20250121
  Transmission Date: 20250409
  Serious: No
  Sender: ASTELLAS
  Company Number: AT-ASTELLAS-2025-AER-002849

PATIENT
  Sex: Female

DRUGS (1)
  1. VEOZAH [Suspect]
     Active Substance: FEZOLINETANT
     Indication: Product used for unknown indication
     Route: 050

REACTIONS (4)
  - Eye swelling [Unknown]
  - Weight increased [Unknown]
  - Alopecia [Unknown]
  - Hot flush [Unknown]
